FAERS Safety Report 14820213 (Version 4)
Quarter: 2018Q2

REPORT INFORMATION
  Report Type: Spontaneous
  Country: JP (occurrence: JP)
  Receive Date: 20180427
  Receipt Date: 20180515
  Transmission Date: 20180711
  Serious: Yes (Hospitalization, Other)
  Sender: FDA-Public Use
  Company Number: PHJP2018JP009552

PATIENT
  Age: 78 Year
  Sex: Female

DRUGS (8)
  1. NEORAL [Suspect]
     Active Substance: CYCLOSPORINE
     Indication: MYELODYSPLASTIC SYNDROME
     Dosage: 150 MG, UNK
     Route: 048
     Dates: start: 201609
  2. EXJADE [Suspect]
     Active Substance: DEFERASIROX
     Indication: MYELODYSPLASTIC SYNDROME
     Dosage: 125 MG, BID
     Route: 048
  3. NEORAL [Suspect]
     Active Substance: CYCLOSPORINE
     Indication: 5Q MINUS SYNDROME
  4. EXJADE [Suspect]
     Active Substance: DEFERASIROX
     Indication: NATURAL KILLER CELL COUNT INCREASED
  5. CORTISOL [Concomitant]
     Active Substance: HYDROCORTISONE
     Indication: ECZEMA
  6. EXJADE [Suspect]
     Active Substance: DEFERASIROX
     Indication: 5Q MINUS SYNDROME
     Dosage: 500 MG, UNK
     Route: 048
  7. NEORAL [Suspect]
     Active Substance: CYCLOSPORINE
     Indication: NATURAL KILLER CELL COUNT INCREASED
  8. CORTISOL [Concomitant]
     Active Substance: HYDROCORTISONE
     Indication: URTICARIA
     Route: 065

REACTIONS (13)
  - Bone marrow failure [Unknown]
  - Sinusitis [Unknown]
  - Iron overload [Unknown]
  - Febrile neutropenia [Unknown]
  - Eczema [Unknown]
  - Opportunistic infection [Unknown]
  - Product use in unapproved indication [Unknown]
  - Natural killer cell count increased [Unknown]
  - Epistaxis [Unknown]
  - 5q minus syndrome [Unknown]
  - Malignant neoplasm progression [Unknown]
  - Blood creatinine increased [Unknown]
  - Urticaria [Unknown]
